APPROVED DRUG PRODUCT: CHLORHEXIDINE GLUCONATE
Active Ingredient: CHLORHEXIDINE GLUCONATE
Strength: 0.12%
Dosage Form/Route: SOLUTION;DENTAL
Application: A074522 | Product #001 | TE Code: AT
Applicant: PHARMACEUTICAL ASSOCIATES INC
Approved: Dec 15, 1995 | RLD: No | RS: No | Type: RX